FAERS Safety Report 8414407-9 (Version None)
Quarter: 2012Q2

REPORT INFORMATION
  Report Type: 
  Country: None (occurrence: None)
  Receive Date: 20120605
  Receipt Date: 20120522
  Transmission Date: 20120825
  Serious: Yes (Hospitalization)
  Sender: FDA-Public Use
  Company Number: CHPA2012US011424

PATIENT
  Sex: Female

DRUGS (2)
  1. EXCEDRIN PM CAPLETS [Suspect]
     Indication: PAIN
     Dosage: 2 DF, QD
     Route: 048
  2. ANTIDEPRESSANTS [Concomitant]
     Indication: DEPRESSION
     Dosage: UNK

REACTIONS (4)
  - ARTHRALGIA [None]
  - INSOMNIA [None]
  - ARTHROPATHY [None]
  - INCORRECT DRUG ADMINISTRATION DURATION [None]
